FAERS Safety Report 7229753-4 (Version None)
Quarter: 2011Q1

REPORT INFORMATION
  Report Type: 
  Country: None (occurrence: None)
  Receive Date: 20110117
  Receipt Date: 20110111
  Transmission Date: 20110831
  Serious: Yes (Hospitalization)
  Sender: FDA-Public Use
  Company Number: JP-PFIZER INC-2009221818

PATIENT
  Age: 28 Year
  Sex: Male
  Weight: 50 kg

DRUGS (1)
  1. GENOTROPIN [Suspect]
     Indication: GROWTH HORMONE DEFICIENCY
     Dosage: 0.175 MG/KG, WEEK
     Route: 058

REACTIONS (2)
  - MUSCLE HYPERTROPHY [None]
  - PROGNATHISM [None]
